FAERS Safety Report 7752453-9 (Version None)
Quarter: 2011Q3

REPORT INFORMATION
  Report Type: 
  Country: None (occurrence: None)
  Receive Date: 20110915
  Receipt Date: 20110909
  Transmission Date: 20111222
  Serious: Yes (Death, Hospitalization, Other)
  Sender: FDA-Public Use
  Company Number: PHEH2007US08749

PATIENT
  Sex: Female

DRUGS (27)
  1. VASOTEC [Concomitant]
     Dosage: 10 MG, QD
     Route: 048
  2. ATIVAN [Concomitant]
  3. CELEBREX [Concomitant]
     Dosage: 200 MG, QD
  4. PERCOCET [Concomitant]
  5. MEGACE [Concomitant]
  6. AREDIA [Suspect]
     Dates: start: 20050101
  7. REGLAN [Concomitant]
  8. DIGOXIN [Concomitant]
     Dosage: 0.25 MG, QD
  9. GEMZAR [Concomitant]
  10. OXYCODONE HCL [Concomitant]
  11. AROMASIN [Concomitant]
  12. LASIX [Concomitant]
     Dosage: 20 MG, QD
  13. ZOMETA [Suspect]
     Indication: METASTASES TO BONE
     Dates: start: 20030218, end: 20050127
  14. LEXAPRO [Concomitant]
  15. ROXICET [Concomitant]
     Dates: start: 20030901
  16. TYLENOL-500 [Concomitant]
  17. INVANZ [Concomitant]
     Dosage: 1 G, QD
     Dates: start: 20060624
  18. COMBIVENT [Concomitant]
     Dosage: 2 DF,
  19. FEMARA [Concomitant]
  20. RADIOTHERAPY [Concomitant]
     Indication: PELVIC FRACTURE
     Dates: start: 20030501
  21. TAMOXIFEN CITRATE [Concomitant]
     Dates: start: 19990801
  22. FLONASE [Concomitant]
  23. CLINDAMYCIN [Concomitant]
     Dosage: 300 MG, QID
     Dates: start: 20060625
  24. PREVACID [Concomitant]
     Dosage: 30 MG, QD
  25. OXYCONTIN [Concomitant]
     Dosage: 30 MG, BID
  26. FASLODEX [Concomitant]
  27. ACETAMINOPHEN [Concomitant]

REACTIONS (69)
  - PAIN [None]
  - ILEAL STENOSIS [None]
  - BONE FRAGMENTATION [None]
  - HAEMORRHOIDS [None]
  - CHEST PAIN [None]
  - METASTASES TO PLEURA [None]
  - OSTEOSCLEROSIS [None]
  - DECREASED APPETITE [None]
  - ODYNOPHAGIA [None]
  - FALL [None]
  - FIBULA FRACTURE [None]
  - JOINT SWELLING [None]
  - DEATH [None]
  - NEOPLASM MALIGNANT [None]
  - OSTEOLYSIS [None]
  - DENTAL CARIES [None]
  - IMPAIRED HEALING [None]
  - HYPERTENSION [None]
  - TACHYCARDIA [None]
  - CHRONIC OBSTRUCTIVE PULMONARY DISEASE [None]
  - HYPOXIA [None]
  - CONSTIPATION [None]
  - DIZZINESS [None]
  - EMOTIONAL DISTRESS [None]
  - METASTASES TO BONE [None]
  - BONE PAIN [None]
  - CROHN'S DISEASE [None]
  - OSTEOPENIA [None]
  - PNEUMONIA [None]
  - JAW FRACTURE [None]
  - DIARRHOEA [None]
  - ABDOMINAL PAIN UPPER [None]
  - PATHOLOGICAL FRACTURE [None]
  - OSTEONECROSIS OF JAW [None]
  - BONE DISORDER [None]
  - GENERAL PHYSICAL HEALTH DETERIORATION [None]
  - SPINAL OSTEOARTHRITIS [None]
  - WEIGHT DECREASED [None]
  - ORAL CAVITY FISTULA [None]
  - RESPIRATORY FAILURE [None]
  - ANAEMIA [None]
  - ATRIAL FLUTTER [None]
  - NEOPLASM PROGRESSION [None]
  - BONE LESION [None]
  - PAIN IN JAW [None]
  - SMALL INTESTINAL OBSTRUCTION [None]
  - METASTASES TO LUNG [None]
  - NASAL CONGESTION [None]
  - ANXIETY [None]
  - PLEURAL EFFUSION [None]
  - MUCOSAL ULCERATION [None]
  - ABDOMINAL DISTENSION [None]
  - OBSTRUCTIVE AIRWAYS DISORDER [None]
  - ARTHRITIS [None]
  - RIB FRACTURE [None]
  - DECREASED INTEREST [None]
  - INFECTION [None]
  - CHOLELITHIASIS [None]
  - LUNG INFILTRATION [None]
  - DYSPHAGIA [None]
  - ACQUIRED DIAPHRAGMATIC EVENTRATION [None]
  - OSTEOMYELITIS [None]
  - FLUID OVERLOAD [None]
  - ILEUS [None]
  - METASTASES TO LIVER [None]
  - ATELECTASIS [None]
  - DYSPNOEA [None]
  - CONTUSION [None]
  - HYPOTENSION [None]
